FAERS Safety Report 9009699 (Version 2)
Quarter: 2013Q1

REPORT INFORMATION
  Report Type: Spontaneous
  Country: ES (occurrence: ES)
  Receive Date: 20130110
  Receipt Date: 20130128
  Transmission Date: 20140127
  Serious: Yes (Life-Threatening, Hospitalization, Other)
  Sender: FDA-Public Use
  Company Number: ES-JNJFOC-20130101048

PATIENT
  Age: 13 Year
  Sex: Male

DRUGS (2)
  1. CONCERTA [Suspect]
     Indication: PRODUCT USED FOR UNKNOWN INDICATION
     Route: 048
  2. TOPAMAX [Suspect]
     Indication: PRODUCT USED FOR UNKNOWN INDICATION
     Route: 048

REACTIONS (4)
  - Heat stroke [Recovered/Resolved]
  - Rhabdomyolysis [Recovered/Resolved]
  - Prerenal failure [Recovered/Resolved]
  - Transaminases increased [Recovered/Resolved]
